FAERS Safety Report 9312592 (Version 2)
Quarter: 2013Q3

REPORT INFORMATION
  Report Type: Report from Study
  Country: RO (occurrence: RO)
  Receive Date: 20130528
  Receipt Date: 20130813
  Transmission Date: 20140515
  Serious: Yes (Other)
  Sender: FDA-Public Use
  Company Number: RO-VIIV HEALTHCARE LIMITED-A1024225A

PATIENT
  Age: 20 Year
  Sex: Female

DRUGS (3)
  1. COMBIVIR [Suspect]
     Indication: ANTIVIRAL TREATMENT
     Dosage: 900TAB PER DAY
     Route: 048
     Dates: start: 20100506
  2. INTELENCE [Suspect]
     Indication: ANTIVIRAL TREATMENT
     Dosage: 400MG PER DAY
     Route: 048
     Dates: start: 20120616, end: 20130312
  3. KALETRA [Suspect]
     Indication: ANTIVIRAL TREATMENT
     Dosage: 1000TAB PER DAY
     Route: 048
     Dates: start: 20100506

REACTIONS (3)
  - Abortion induced [Unknown]
  - Foetal death [Unknown]
  - Exposure during pregnancy [Unknown]
